FAERS Safety Report 16431541 (Version 1)
Quarter: 2019Q2

REPORT INFORMATION
  Report Type: Report from Study
  Country: US (occurrence: US)
  Receive Date: 20190614
  Receipt Date: 20190614
  Transmission Date: 20190711
  Serious: Yes (Life-Threatening, Other)
  Sender: FDA-Public Use
  Company Number: US-RECRO GAINESVILLE LLC-REPH-2019-000094

PATIENT

DRUGS (1)
  1. VERAPAMIL HYDROCHLORIDE SUSTAINED RELEASE [Suspect]
     Active Substance: VERAPAMIL HYDROCHLORIDE
     Indication: PULMONARY ARTERIAL HYPERTENSION
     Dosage: 5 MILLIGRAM, TWO DOSES 10 MINUTES APART
     Route: 042

REACTIONS (6)
  - Cardiac arrest [Recovered/Resolved]
  - Loss of consciousness [Unknown]
  - Right ventricular ejection fraction decreased [Unknown]
  - Hypotension [Recovered/Resolved]
  - Cardiac index decreased [Unknown]
  - Cardiogenic shock [Recovered/Resolved]
